FAERS Safety Report 6508349-3 (Version None)
Quarter: 2009Q4

REPORT INFORMATION
  Report Type: 
  Country: None (occurrence: None)
  Receive Date: 20091221
  Receipt Date: 20090108
  Transmission Date: 20100525
  Serious: No
  Sender: FDA-Public Use
  Company Number: US-ASTRAZENECA-2008UW23998

PATIENT
  Age: 82 Year
  Sex: Female
  Weight: 68 kg

DRUGS (3)
  1. CRESTOR [Suspect]
     Indication: BLOOD CHOLESTEROL INCREASED
     Route: 048
     Dates: start: 20060101, end: 20081113
  2. ELAVIL [Concomitant]
  3. VITAMINS [Concomitant]

REACTIONS (2)
  - MUSCLE RIGIDITY [None]
  - MUSCULAR WEAKNESS [None]
